FAERS Safety Report 12474224 (Version 1)
Quarter: 2016Q2

REPORT INFORMATION
  Report Type: Spontaneous
  Country: US (occurrence: US)
  Receive Date: 20160616
  Receipt Date: 20160616
  Transmission Date: 20160815
  Serious: Yes (Other)
  Sender: FDA-Public Use
  Company Number: US-BRISTOL-MYERS SQUIBB COMPANY-BMS-2016-045716

PATIENT
  Sex: Female

DRUGS (2)
  1. EMPLICITI [Suspect]
     Active Substance: ELOTUZUMAB
     Indication: PRODUCT USED FOR UNKNOWN INDICATION
     Dosage: 2 ML/MIN, UNK
     Route: 042
  2. EMPLICITI [Suspect]
     Active Substance: ELOTUZUMAB
     Dosage: 4 ML/MIN, UNK
     Route: 042

REACTIONS (3)
  - Hyperhidrosis [Unknown]
  - Hypotension [Unknown]
  - Bradycardia [Unknown]
